FAERS Safety Report 14130656 (Version 1)
Quarter: 2017Q4

REPORT INFORMATION
  Report Type: Spontaneous
  Country: US (occurrence: US)
  Receive Date: 20171026
  Receipt Date: 20171026
  Transmission Date: 20180321
  Serious: Yes (Other)
  Sender: FDA-Public Use
  Company Number: US-GILEAD-2017-0300306

PATIENT
  Age: 59 Year
  Sex: Female
  Weight: 165.53 kg

DRUGS (12)
  1. FUROSEMIDE. [Concomitant]
     Active Substance: FUROSEMIDE
  2. MIRALAX [Concomitant]
     Active Substance: POLYETHYLENE GLYCOL 3350
  3. ASPIRIN                            /00002701/ [Concomitant]
     Active Substance: ASPIRIN
  4. SPIRONOLACTONE. [Concomitant]
     Active Substance: SPIRONOLACTONE
  5. CALCIUM CITRATE/VITAMIN D [Concomitant]
     Active Substance: CALCIUM CITRATE\VITAMIN D
  6. ENALAPRIL [Concomitant]
     Active Substance: ENALAPRIL
  7. CHLORTHALIDONE. [Concomitant]
     Active Substance: CHLORTHALIDONE
  8. AMLODIPINE [Concomitant]
     Active Substance: AMLODIPINE BESYLATE
  9. HARVONI [Suspect]
     Active Substance: LEDIPASVIR\SOFOSBUVIR
     Indication: HEPATITIS C
     Dosage: UNK
     Route: 065
     Dates: start: 20160523, end: 20160814
  10. HYDROCERIN [Concomitant]
  11. TYLENOL [Concomitant]
     Active Substance: ACETAMINOPHEN
  12. METOPROLOL. [Concomitant]
     Active Substance: METOPROLOL

REACTIONS (8)
  - Atrial fibrillation [Unknown]
  - Hypertension [Unknown]
  - Peripheral vascular disorder [Unknown]
  - Oedema [Unknown]
  - Treatment failure [Unknown]
  - Drug ineffective [Unknown]
  - Hepatitis C [Unknown]
  - Vitamin D deficiency [Unknown]
